FAERS Safety Report 8817015 (Version 1)
Quarter: 2012Q4

REPORT INFORMATION
  Report Type: Spontaneous
  Country: US (occurrence: None)
  Receive Date: 20121002
  Receipt Date: 20121002
  Transmission Date: 20130627
  Serious: Yes (Hospitalization)
  Sender: FDA-Public Use
  Company Number: None

PATIENT
  Sex: Female
  Weight: 86.18 kg

DRUGS (1)
  1. AFINITOR [Suspect]
     Indication: LUNG CANCER
     Route: 048
     Dates: start: 201207, end: 201209

REACTIONS (6)
  - Nausea [None]
  - Chest pain [None]
  - Hypoaesthesia [None]
  - Dehydration [None]
  - Drug ineffective [None]
  - Neoplasm progression [None]
